FAERS Safety Report 8494739-9 (Version None)
Quarter: 2012Q3

REPORT INFORMATION
  Report Type: 
  Country: None (occurrence: None)
  Receive Date: 20120709
  Receipt Date: 20120702
  Transmission Date: 20120928
  Serious: Yes (Other)
  Sender: FDA-Public Use
  Company Number: US-AMGEN-USASP2012040762

PATIENT
  Age: 56 Year
  Sex: Female

DRUGS (1)
  1. ENBREL [Suspect]
     Indication: PSORIATIC ARTHROPATHY
     Dosage: 50 MG, QWK
     Dates: start: 20090101, end: 20111101

REACTIONS (5)
  - PHOTOSENSITIVITY REACTION [None]
  - PAIN [None]
  - CHRONIC HEPATITIS [None]
  - SKIN BURNING SENSATION [None]
  - RASH PRURITIC [None]
